FAERS Safety Report 17814684 (Version 2)
Quarter: 2020Q2

REPORT INFORMATION
  Report Type: Spontaneous
  Country: GB (occurrence: GB)
  Receive Date: 20200522
  Receipt Date: 20200531
  Transmission Date: 20200714
  Serious: Yes (Other)
  Sender: FDA-Public Use
  Company Number: GB-AUROBINDO-AUR-APL-2020-026015

PATIENT
  Sex: Female

DRUGS (2)
  1. ABACAVIR + LAMIVUDINE 600/300MG [Suspect]
     Active Substance: ABACAVIR\LAMIVUDINE
     Indication: PRODUCT USED FOR UNKNOWN INDICATION
     Dosage: UNK,ONCE A DAY
     Route: 065
  2. EFAVIRENZ 600MG [Suspect]
     Active Substance: EFAVIRENZ
     Indication: PRODUCT USED FOR UNKNOWN INDICATION
     Dosage: 600 MILLIGRAM, ONCE A DAY
     Route: 065

REACTIONS (6)
  - COVID-19 [Unknown]
  - Oropharyngeal pain [Unknown]
  - Asthenia [Unknown]
  - Cough [Unknown]
  - Dyspnoea [Unknown]
  - Vomiting [Unknown]

NARRATIVE: CASE EVENT DATE: 20200504
